FAERS Safety Report 5388225-2 (Version None)
Quarter: 2007Q3

REPORT INFORMATION
  Report Type: 
  Country: None (occurrence: None)
  Receive Date: 20070716
  Receipt Date: 20070130
  Transmission Date: 20080115
  Serious: No
  Sender: FDA-Public Use
  Company Number: A0637376A

PATIENT
  Age: 61 Year
  Sex: Female

DRUGS (2)
  1. NICORETTE [Suspect]
  2. COMMIT [Suspect]

REACTIONS (2)
  - HYPERHIDROSIS [None]
  - RETCHING [None]
